FAERS Safety Report 21720173 (Version 1)
Quarter: 2022Q4

REPORT INFORMATION
  Report Type: Spontaneous
  Country: ES (occurrence: ES)
  Receive Date: 20221213
  Receipt Date: 20221213
  Transmission Date: 20230113
  Serious: Yes (Hospitalization, Other)
  Sender: FDA-Public Use
  Company Number: ES-SUN PHARMACEUTICAL INDUSTRIES LTD-2022RR-367839

PATIENT
  Age: 57 Year
  Sex: Male

DRUGS (3)
  1. MORPHINE [Suspect]
     Active Substance: MORPHINE
     Indication: Pain
     Dosage: 3.076 MILLIGRAMS EQUIVALENTS
     Route: 065
  2. FENTANYL [Suspect]
     Active Substance: FENTANYL
     Indication: Pain
     Dosage: 100 MICROGRAM, DAILY
     Route: 062
  3. FENTANYL [Suspect]
     Active Substance: FENTANYL
     Dosage: 100 MICROGRAM, UNK

REACTIONS (2)
  - Hyperaesthesia [Unknown]
  - Intentional product misuse [Unknown]
